FAERS Safety Report 8550154-0 (Version None)
Quarter: 2012Q3

REPORT INFORMATION
  Report Type: 
  Country: None (occurrence: None)
  Receive Date: 20120730
  Receipt Date: 20110426
  Transmission Date: 20120928
  Serious: No
  Sender: FDA-Public Use
  Company Number: US-ALLERGAN-1103885US

PATIENT
  Sex: Male
  Weight: 81.633 kg

DRUGS (7)
  1. ZOCOR [Concomitant]
  2. PREVACID [Concomitant]
  3. LUMIGAN [Suspect]
     Indication: ABNORMAL SENSATION IN EYE
  4. AZOPT [Concomitant]
     Dosage: UNK
     Dates: start: 20090301, end: 20101201
  5. AVAPRO [Concomitant]
  6. LUMIGAN [Suspect]
     Indication: GLAUCOMA
     Dosage: 1 GTT, QHS
     Route: 047
     Dates: start: 20090812, end: 20110323
  7. CARDURA [Concomitant]

REACTIONS (2)
  - ENOPHTHALMOS [None]
  - EYELID DISORDER [None]
